FAERS Safety Report 6013534-3 (Version None)
Quarter: 2008Q4

REPORT INFORMATION
  Report Type: 
  Country: None (occurrence: None)
  Receive Date: 20081219
  Receipt Date: 20081215
  Transmission Date: 20090506
  Serious: Yes (Death, Hospitalization, Other)
  Sender: FDA-Public Use
  Company Number: PHBS2006JP16080

PATIENT
  Sex: Male

DRUGS (6)
  1. GLEEVEC [Suspect]
     Indication: CHRONIC MYELOID LEUKAEMIA
     Dosage: 400 MG/DAY
     Route: 048
     Dates: start: 20060602, end: 20061102
  2. GLEEVEC [Suspect]
     Dosage: 100 MG/DAY
  3. RABEPRAZOLE SODIUM [Concomitant]
     Indication: GASTRITIS
     Dosage: 10 MG
     Route: 048
     Dates: start: 20060602
  4. MAGMITT KENEI [Concomitant]
     Indication: CONSTIPATION
     Dosage: 1980 MG
     Route: 048
  5. MUCODYNE [Concomitant]
     Indication: BRONCHITIS
     Dosage: 1500 MG
     Route: 048
     Dates: start: 20060920, end: 20061130
  6. TRANSAMIN [Concomitant]
     Indication: AORTIC ANEURYSM
     Dosage: 750 MG
     Route: 048
     Dates: start: 20060701

REACTIONS (8)
  - ANAEMIA [None]
  - BRONCHITIS [None]
  - COUGH [None]
  - HAEMOGLOBIN DECREASED [None]
  - HISTIOCYTOSIS HAEMATOPHAGIC [None]
  - MALIGNANT NEOPLASM PROGRESSION [None]
  - PLATELET COUNT DECREASED [None]
  - THROMBOCYTOPENIA [None]
